FAERS Safety Report 17912715 (Version 2)
Quarter: 2020Q3

REPORT INFORMATION
  Report Type: Report from Study
  Country: AU (occurrence: AU)
  Receive Date: 20200618
  Receipt Date: 20200708
  Transmission Date: 20201103
  Serious: Yes (Other)
  Sender: FDA-Public Use
  Company Number: AU-EMD SERONO-9165746

PATIENT
  Sex: Male

DRUGS (3)
  1. MAVENCLAD [Suspect]
     Active Substance: CLADRIBINE
     Dosage: YEAR TWO WEEK FIVE THERAPY.
     Dates: start: 20200525
  2. MAVENCLAD [Suspect]
     Active Substance: CLADRIBINE
     Indication: MULTIPLE SCLEROSIS
     Dosage: YEAR ONE THERAPY.
     Dates: start: 20190422
  3. MAVENCLAD [Suspect]
     Active Substance: CLADRIBINE
     Dosage: YEAR TWO WEEK ONE THERAPY.
     Dates: start: 20200424

REACTIONS (1)
  - Chronic lymphocytic leukaemia [Unknown]
